FAERS Safety Report 17940759 (Version 1)
Quarter: 2020Q2

REPORT INFORMATION
  Report Type: Spontaneous
  Country: FR (occurrence: FR)
  Receive Date: 20200625
  Receipt Date: 20200625
  Transmission Date: 20200714
  Serious: Yes (Hospitalization, Other)
  Sender: FDA-Public Use
  Company Number: FR-SA-2020SA159618

PATIENT

DRUGS (2)
  1. AUBAGIO [Suspect]
     Active Substance: TERIFLUNOMIDE
     Indication: MULTIPLE SCLEROSIS
     Dosage: 1 DF
     Route: 048
     Dates: start: 2017
  2. SOLUPRED (PREDNISOLONE) [Suspect]
     Active Substance: PREDNISOLONE

REACTIONS (4)
  - Cardiac failure [Not Recovered/Not Resolved]
  - Hypertension [Not Recovered/Not Resolved]
  - Acute pulmonary oedema [Not Recovered/Not Resolved]
  - Dyspnoea [Not Recovered/Not Resolved]

NARRATIVE: CASE EVENT DATE: 20200515
